FAERS Safety Report 11673333 (Version 1)
Quarter: 2015Q4

REPORT INFORMATION
  Report Type: Spontaneous
  Country: US (occurrence: None)
  Receive Date: 20151027
  Receipt Date: 20151027
  Transmission Date: 20160304
  Serious: Yes (Hospitalization)
  Sender: FDA-Public Use
  Company Number: None

PATIENT
  Age: 37 Year
  Sex: Female
  Weight: 92.53 kg

DRUGS (4)
  1. TRIAMT/HYDROCHLOROTHIAZIDE [Concomitant]
  2. B1 [Concomitant]
  3. D3 [Concomitant]
     Active Substance: 25-HYDROXYCHOLECALCIFEROL, 5-TRANS-
  4. NIACIN 500MG QUALITY SUPPLEMENTS AND VITAMINS I [Suspect]
     Active Substance: NIACIN
     Route: 048

REACTIONS (7)
  - Pruritus [None]
  - Abdominal pain lower [None]
  - Vomiting [None]
  - Muscle spasms [None]
  - Feeling hot [None]
  - Pain [None]
  - Product label confusion [None]

NARRATIVE: CASE EVENT DATE: 20151024
